FAERS Safety Report 25103473 (Version 7)
Quarter: 2025Q4

REPORT INFORMATION
  Report Type: Report from Study
  Country: US (occurrence: US)
  Receive Date: 20250321
  Receipt Date: 20251006
  Transmission Date: 20260117
  Serious: Yes (Other)
  Sender: SUNOVION
  Company Number: US-SMPA-2025SPA003185

PATIENT
  Age: 68 Year
  Sex: Male

DRUGS (11)
  1. ORGOVYX [Suspect]
     Active Substance: RELUGOLIX
     Indication: Prostate cancer
     Dosage: 360 MG
     Route: 048
  2. ORGOVYX [Suspect]
     Active Substance: RELUGOLIX
     Dosage: 120 MG, QD
     Route: 048
     Dates: start: 202410
  3. KERENDIA [Concomitant]
     Active Substance: FINERENONE
     Dosage: UNK
  4. NEBIVOLOL [Concomitant]
     Active Substance: NEBIVOLOL
     Dosage: UNK
  5. LISINOPRIL [Concomitant]
     Active Substance: LISINOPRIL
     Dosage: UNK
  6. ARMOUR THYROID [Concomitant]
     Active Substance: THYROID, PORCINE
     Dosage: UNK
  7. TRAZODONE [Concomitant]
     Active Substance: TRAZODONE HYDROCHLORIDE
     Dosage: UNK
  8. PRAVASTATIN SODIUM [Concomitant]
     Active Substance: PRAVASTATIN SODIUM
     Dosage: UNK
  9. TADALAFIL [Concomitant]
     Active Substance: TADALAFIL
  10. ALLOPURINOL [Concomitant]
     Active Substance: ALLOPURINOL
     Dosage: UNK
  11. OXYCODONE [Concomitant]
     Active Substance: OXYCODONE

REACTIONS (14)
  - Retinal tear [Unknown]
  - Visual impairment [Unknown]
  - Lethargy [Unknown]
  - Brain fog [Unknown]
  - Apathy [Recovering/Resolving]
  - Blood iron increased [Unknown]
  - Muscle atrophy [Unknown]
  - Sleep deficit [Unknown]
  - Fall [Unknown]
  - Blood pressure increased [Unknown]
  - Anaemia [Unknown]
  - Asthenia [Unknown]
  - Hot flush [Recovering/Resolving]
  - Insomnia [Recovering/Resolving]
